FAERS Safety Report 24642051 (Version 1)
Quarter: 2024Q4

REPORT INFORMATION
  Report Type: Spontaneous
  Country: SE (occurrence: SE)
  Receive Date: 20241120
  Receipt Date: 20241120
  Transmission Date: 20250114
  Serious: Yes (Other)
  Sender: PURDUE
  Company Number: SE-NAPPMUNDI-GBR-2024-0121133

PATIENT
  Sex: Female

DRUGS (2)
  1. MORPHINE [Suspect]
     Active Substance: MORPHINE
     Indication: Ileus paralytic
     Dosage: UNK
     Route: 065
  2. MORPHINE [Suspect]
     Active Substance: MORPHINE
     Indication: Inflammatory bowel disease

REACTIONS (3)
  - Pain [Unknown]
  - Contraindicated product administered [Unknown]
  - Product prescribing issue [Unknown]
